FAERS Safety Report 5316211-7 (Version None)
Quarter: 2007Q2

REPORT INFORMATION
  Report Type: 
  Country: None (occurrence: None)
  Receive Date: 20070503
  Receipt Date: 20070425
  Transmission Date: 20071010
  Serious: Yes (Other)
  Sender: FDA-Public Use
  Company Number: JP-ROXANE LABORATORIES, INC-2007-BP-05674RO

PATIENT
  Age: 55 Year
  Sex: Male

DRUGS (6)
  1. LITHIUM CARBONATE [Suspect]
     Indication: MANIA
     Route: 048
     Dates: start: 19970101, end: 20050201
  2. VALPROIC ACID [Concomitant]
  3. NITRAZEPAM [Concomitant]
  4. HALOPERIDOL [Concomitant]
  5. LEVOPROMAZINE [Concomitant]
  6. PIPERIDINE [Concomitant]

REACTIONS (7)
  - HEADACHE [None]
  - OPTIC ATROPHY [None]
  - PAPILLITIS [None]
  - PAPILLOEDEMA [None]
  - PUPILLARY REFLEX IMPAIRED [None]
  - VISION BLURRED [None]
  - VISUAL ACUITY REDUCED [None]
